FAERS Safety Report 18461657 (Version 11)
Quarter: 2023Q4

REPORT INFORMATION
  Report Type: Report from Study
  Country: US (occurrence: US)
  Receive Date: 20201104
  Receipt Date: 20231121
  Transmission Date: 20240110
  Serious: Yes (Hospitalization, Other)
  Sender: FDA-Public Use
  Company Number: US-TAKEDA-2020TUS045592

PATIENT
  Sex: Female

DRUGS (2)
  1. HUMAN IMMUNOGLOBULIN G\HYALURONIDASE RECOMBINANT HUMAN [Suspect]
     Active Substance: HUMAN IMMUNOGLOBULIN G\HYALURONIDASE (HUMAN RECOMBINANT)
     Indication: Primary immunodeficiency syndrome
     Dosage: UNK
     Route: 058
  2. HUMAN IMMUNOGLOBULIN G\HYALURONIDASE RECOMBINANT HUMAN [Suspect]
     Active Substance: HUMAN IMMUNOGLOBULIN G\HYALURONIDASE (HUMAN RECOMBINANT)
     Indication: Immunodeficiency common variable
     Dosage: UNK
     Route: 065
     Dates: end: 202308

REACTIONS (15)
  - Arthropathy [Unknown]
  - Gastrointestinal haemorrhage [Unknown]
  - Skin laceration [Unknown]
  - Staphylococcal infection [Recovering/Resolving]
  - Post procedural complication [Unknown]
  - Infusion site erythema [Unknown]
  - Infusion site pain [Unknown]
  - Streptococcal infection [Recovering/Resolving]
  - Sinusitis [Unknown]
  - Sinonasal papilloma [Unknown]
  - Weight decreased [Unknown]
  - Incontinence [Unknown]
  - Insurance issue [Unknown]
  - Malaise [Unknown]
  - Arthralgia [Not Recovered/Not Resolved]
